FAERS Safety Report 23117854 (Version 2)
Quarter: 2023Q4

REPORT INFORMATION
  Report Type: Spontaneous
  Country: US (occurrence: US)
  Receive Date: 20231027
  Receipt Date: 20231222
  Transmission Date: 20240110
  Serious: No
  Sender: FDA-Public Use
  Company Number: US-PFIZER INC-PV202200022971

PATIENT
  Age: 74 Year
  Sex: Female

DRUGS (1)
  1. TIKOSYN [Suspect]
     Active Substance: DOFETILIDE
     Indication: Atrial fibrillation
     Dosage: 125 UG, 2X/DAY (TAKE 1 CAPSULE (125 MCG TOTAL) BY MOUTH EVERY 12 (TWELVE) HOURS)
     Route: 048
     Dates: start: 20220713

REACTIONS (3)
  - Off label use [Unknown]
  - Product prescribing error [Unknown]
  - Memory impairment [Unknown]
